FAERS Safety Report 23022184 (Version 2)
Quarter: 2023Q4

REPORT INFORMATION
  Report Type: Spontaneous
  Country: IN (occurrence: IN)
  Receive Date: 20231003
  Receipt Date: 20231122
  Transmission Date: 20240110
  Serious: Yes (Other)
  Sender: FDA-Public Use
  Company Number: IN-PFIZER INC-PV202300163239

PATIENT
  Age: 47 Year
  Sex: Female

DRUGS (1)
  1. TOFACITINIB CITRATE [Suspect]
     Active Substance: TOFACITINIB CITRATE
     Indication: Scleritis
     Dosage: UNK

REACTIONS (3)
  - Retinal vein occlusion [Unknown]
  - Off label use [Unknown]
  - Drug effective for unapproved indication [Unknown]
